FAERS Safety Report 16152530 (Version 1)
Quarter: 2019Q2

REPORT INFORMATION
  Report Type: Spontaneous
  Country: IT (occurrence: IT)
  Receive Date: 20190403
  Receipt Date: 20190403
  Transmission Date: 20190711
  Serious: Yes (Other)
  Sender: FDA-Public Use
  Company Number: IT-ACCORD-118121

PATIENT
  Age: 72 Year
  Sex: Female

DRUGS (3)
  1. METHOTREXATE. [Suspect]
     Active Substance: METHOTREXATE
     Indication: OVARIAN ENDOMETRIOID CARCINOMA
     Dosage: POWDER FOR SOLUTION FOR INJECTION/INFUSION
     Route: 041
     Dates: start: 20190110, end: 20190111
  2. FLUOROURACIL. [Suspect]
     Active Substance: FLUOROURACIL
     Indication: OVARIAN ENDOMETRIOID CARCINOMA
     Route: 041
     Dates: start: 20190110, end: 20190111
  3. CYCLOPHOSPHAMIDE/CYCLOPHOSPHAMIDE MONOHYDRATE [Suspect]
     Active Substance: CYCLOPHOSPHAMIDE
     Indication: OVARIAN ENDOMETRIOID CARCINOMA
     Route: 042
     Dates: start: 20190110, end: 20190111

REACTIONS (4)
  - Neutropenia [Unknown]
  - Ischaemia [Unknown]
  - Off label use [Unknown]
  - Red blood cell abnormality [Unknown]

NARRATIVE: CASE EVENT DATE: 20190123
